FAERS Safety Report 17348500 (Version 1)
Quarter: 2020Q1

REPORT INFORMATION
  Report Type: Report from Study
  Country: CA (occurrence: CA)
  Receive Date: 20200129
  Receipt Date: 20200129
  Transmission Date: 20200409
  Serious: No
  Sender: FDA-Public Use
  Company Number: CA-EXELIXIS-CABO-19024114

PATIENT
  Sex: Female

DRUGS (1)
  1. CABOMETYX [Suspect]
     Active Substance: CABOZANTINIB S-MALATE
     Indication: RENAL CELL CARCINOMA
     Dosage: 40 MG, QD
     Route: 048
     Dates: start: 20190813

REACTIONS (5)
  - Fatigue [Recovering/Resolving]
  - Dry skin [Recovering/Resolving]
  - Stomatitis [Recovering/Resolving]
  - Pain in extremity [Recovering/Resolving]
  - Hypertension [Recovering/Resolving]
